FAERS Safety Report 9766463 (Version 1)
Quarter: 2013Q4

REPORT INFORMATION
  Report Type: Spontaneous
  Country: US (occurrence: US)
  Receive Date: 20131217
  Receipt Date: 20131217
  Transmission Date: 20140711
  Serious: No
  Sender: FDA-Public Use
  Company Number: US-BIOGENIDEC-2013BI117961

PATIENT
  Age: 57 Year
  Sex: Female

DRUGS (5)
  1. TECFIDERA [Suspect]
     Indication: MULTIPLE SCLEROSIS
     Dates: start: 20131023
  2. TECFIDERA [Suspect]
     Indication: MULTIPLE SCLEROSIS
     Route: 048
     Dates: start: 20131024, end: 20131030
  3. TECFIDERA [Suspect]
     Indication: MULTIPLE SCLEROSIS
     Route: 048
     Dates: start: 20131031
  4. VALTREX [Concomitant]
  5. METRONIDAZOLE [Concomitant]

REACTIONS (3)
  - Sclerotherapy [Unknown]
  - Impaired healing [Unknown]
  - Flushing [Not Recovered/Not Resolved]
